FAERS Safety Report 9401170 (Version 2)
Quarter: 2013Q3

REPORT INFORMATION
  Report Type: Report from Study
  Country: US (occurrence: US)
  Receive Date: 20130715
  Receipt Date: 20130927
  Transmission Date: 20140515
  Serious: Yes (Hospitalization)
  Sender: FDA-Public Use
  Company Number: US-US-EMD SERONO, INC.-7223547

PATIENT
  Age: 64 Year
  Sex: Female

DRUGS (2)
  1. REBIF [Suspect]
     Indication: MULTIPLE SCLEROSIS
     Route: 058
     Dates: start: 20121128
  2. REBIF [Suspect]
     Route: 058
     Dates: start: 20130704

REACTIONS (19)
  - Concussion [Recovered/Resolved]
  - Dehydration [Recovered/Resolved]
  - Head injury [Unknown]
  - Fall [Recovered/Resolved]
  - Dyspnoea [Recovered/Resolved]
  - Disorientation [Recovered/Resolved]
  - Nausea [Recovered/Resolved]
  - Chest pain [Recovered/Resolved]
  - Dizziness [Recovered/Resolved]
  - Cataract [Not Recovered/Not Resolved]
  - Restless legs syndrome [Unknown]
  - Contusion [Unknown]
  - Glossitis [Not Recovered/Not Resolved]
  - Peroneal nerve palsy [Not Recovered/Not Resolved]
  - Ear disorder [Recovering/Resolving]
  - Periorbital contusion [Recovered/Resolved]
  - Contusion [Recovered/Resolved]
  - Vomiting [Recovered/Resolved]
  - Diarrhoea [Recovered/Resolved]
